FAERS Safety Report 8068612-4 (Version None)
Quarter: 2012Q1

REPORT INFORMATION
  Report Type: 
  Country: None (occurrence: None)
  Receive Date: 20120124
  Receipt Date: 20111109
  Transmission Date: 20120608
  Serious: No
  Sender: FDA-Public Use
  Company Number: US-AMGEN-USASP2011058692

PATIENT
  Age: 79 Year
  Sex: Female

DRUGS (8)
  1. NEXIUM [Concomitant]
     Dosage: UNK
  2. CALCIUM CITRATE WITH VITAMIN D [Concomitant]
     Dosage: UNK
  3. BENICAR [Concomitant]
  4. NABUMETONE [Concomitant]
     Dosage: UNK
  5. VITAMIN D [Concomitant]
  6. ROPINIROLE [Concomitant]
     Dosage: UNK
  7. PROLIA [Suspect]
     Indication: OSTEOPOROSIS POSTMENOPAUSAL
     Dosage: 60 MG, Q6MO
     Dates: start: 20110927
  8. MULTIVITAMIN                       /00097801/ [Concomitant]
     Dosage: UNK

REACTIONS (1)
  - ARTHRALGIA [None]
